FAERS Safety Report 24827657 (Version 1)
Quarter: 2025Q1

REPORT INFORMATION
  Report Type: Report from Study
  Country: KR (occurrence: KR)
  Receive Date: 20250109
  Receipt Date: 20250109
  Transmission Date: 20250408
  Serious: Yes (Hospitalization, Other)
  Sender: JAZZ
  Company Number: KR-BR-2024-0222

PATIENT
  Age: 77 Year
  Sex: Male
  Weight: 60 kg

DRUGS (14)
  1. LURBINECTEDIN [Suspect]
     Active Substance: LURBINECTEDIN
     Indication: Small cell lung cancer
     Dosage: 3.2 MILLIGRAM/SQ. METER, Q3W
     Route: 042
     Dates: start: 20240430, end: 20240702
  2. AMOSARTAN [Concomitant]
     Indication: Hypertension
  3. LIPITOR [Concomitant]
     Active Substance: ATORVASTATIN CALCIUM
     Indication: Hyperlipidaemia
  4. METFORMIN HYDROCHLORIDE\VILDAGLIPTIN [Concomitant]
     Active Substance: METFORMIN HYDROCHLORIDE\VILDAGLIPTIN
     Indication: Diabetes mellitus
  5. GASTIIN CR [Concomitant]
     Indication: Prophylaxis
     Dates: start: 20211207
  6. RECOMID SR [Concomitant]
     Indication: Gastritis prophylaxis
     Dates: start: 20240914
  7. PARAMACET ER [Concomitant]
     Indication: Pain prophylaxis
     Dates: start: 20220517
  8. BORYUNGBIO ASTRIX [Concomitant]
     Indication: Coronary artery disease
     Dates: start: 20231026
  9. YUHAN DEXAMETHASONE DISODIUM PHOSPHATE [Concomitant]
     Indication: Prophylaxis of nausea and vomiting
     Dosage: 10 MILLIGRAM, QD
     Route: 042
     Dates: start: 20240430, end: 20240430
  10. YUHAN DEXAMETHASONE DISODIUM PHOSPHATE [Concomitant]
     Dosage: 10 MILLIGRAM, QD
     Route: 042
     Dates: start: 20240521, end: 20240521
  11. YUHAN DEXAMETHASONE DISODIUM PHOSPHATE [Concomitant]
     Dosage: 10 MILLIGRAM, QD
     Route: 042
     Dates: start: 20240611, end: 20240611
  12. ALOXI [Concomitant]
     Active Substance: PALONOSETRON HYDROCHLORIDE
     Indication: Prophylaxis of nausea and vomiting
     Dosage: 5 MILLILITER, QD
     Route: 042
     Dates: start: 20240430, end: 20240430
  13. ALOXI [Concomitant]
     Active Substance: PALONOSETRON HYDROCHLORIDE
     Dosage: 5 MILLILITER, QD
     Route: 042
     Dates: start: 20240521, end: 20240521
  14. ALOXI [Concomitant]
     Active Substance: PALONOSETRON HYDROCHLORIDE
     Dosage: 5 MILLILITER, QD
     Route: 042
     Dates: start: 20240611, end: 20240611

REACTIONS (1)
  - Pancytopenia [Recovering/Resolving]

NARRATIVE: CASE EVENT DATE: 20240715
